FAERS Safety Report 24133781 (Version 8)
Quarter: 2025Q1

REPORT INFORMATION
  Report Type: Spontaneous
  Country: US (occurrence: US)
  Receive Date: 20240724
  Receipt Date: 20250116
  Transmission Date: 20250409
  Serious: Yes (Hospitalization, Other)
  Sender: KARYOPHARM THERAPEUTICS
  Company Number: US-KARYOPHARM-2024KPT001304

PATIENT

DRUGS (3)
  1. XPOVIO [Suspect]
     Active Substance: SELINEXOR
     Indication: Plasma cell myeloma
     Dosage: 60 MG, WEEKLY
     Route: 048
     Dates: start: 20240625, end: 2024
  2. XPOVIO [Suspect]
     Active Substance: SELINEXOR
     Dosage: 60 MG, WEEKLY
     Route: 048
     Dates: start: 2024
  3. POMALYST [Concomitant]
     Active Substance: POMALIDOMIDE
     Dosage: 2 MG, QD FOR 21 DAYS ON THEN 7 DAYS OFF

REACTIONS (8)
  - Pulmonary thrombosis [Unknown]
  - Cardiac disorder [Unknown]
  - Muscle spasms [Unknown]
  - Feeling abnormal [Unknown]
  - Dysuria [Recovering/Resolving]
  - Skin disorder [Unknown]
  - Plasma cell myeloma [Unknown]
  - Platelet count decreased [Unknown]

NARRATIVE: CASE EVENT DATE: 20240101
